FAERS Safety Report 13094859 (Version 2)
Quarter: 2017Q1

REPORT INFORMATION
  Report Type: Report from Study
  Country: BR (occurrence: BR)
  Receive Date: 20170106
  Receipt Date: 20170117
  Transmission Date: 20170428
  Serious: Yes (Hospitalization, Other)
  Sender: FDA-Public Use
  Company Number: PHHY2017BR000845

PATIENT
  Sex: Female
  Weight: 56 kg

DRUGS (1)
  1. EXJADE [Suspect]
     Active Substance: DEFERASIROX
     Indication: SICKLE CELL ANAEMIA
     Dosage: 1750 MG, QD  (3 TABLETS OF 500MG AND 1 TABLET OF 250MG)
     Route: 048

REACTIONS (5)
  - Tongue disorder [Unknown]
  - Pneumonia [Unknown]
  - Cerebrovascular accident [Unknown]
  - Sickle cell anaemia with crisis [Recovered/Resolved]
  - Wrong technique in product usage process [Recovered/Resolved]
